FAERS Safety Report 10537624 (Version 3)
Quarter: 2015Q2

REPORT INFORMATION
  Report Type: Report from Study
  Country: US (occurrence: US)
  Receive Date: 20141023
  Receipt Date: 20150514
  Transmission Date: 20150821
  Serious: Yes (Hospitalization, Other)
  Sender: FDA-Public Use
  Company Number: US-SHIRE-US201407095

PATIENT
  Age: 14 Year
  Sex: Male
  Weight: 24.95 kg

DRUGS (2)
  1. IDURSULFASE [Suspect]
     Active Substance: IDURSULFASE
     Dosage: UNK, UNKNOWN
     Route: 041
     Dates: start: 20111003
  2. IDURSULFASE [Suspect]
     Active Substance: IDURSULFASE
     Indication: MUCOPOLYSACCHARIDOSIS II
     Dosage: 13.7 MG, 1X/WEEK
     Route: 041
     Dates: start: 20130508

REACTIONS (8)
  - Anaesthetic complication [Unknown]
  - Localised infection [Recovered/Resolved]
  - Dysphagia [Recovering/Resolving]
  - Body tinea [Not Recovered/Not Resolved]
  - Increased upper airway secretion [Unknown]
  - Cellulitis [Not Recovered/Not Resolved]
  - Klebsiella infection [Recovered/Resolved]
  - Aspiration [Recovering/Resolving]

NARRATIVE: CASE EVENT DATE: 2014
